FAERS Safety Report 7647685-4 (Version None)
Quarter: 2011Q3

REPORT INFORMATION
  Report Type: 
  Country: None (occurrence: None)
  Receive Date: 20110801
  Receipt Date: 20110801
  Transmission Date: 20111222
  Serious: Yes (Hospitalization)
  Sender: FDA-Public Use
  Company Number: None

PATIENT
  Age: 67 Year
  Sex: Male
  Weight: 86 kg

DRUGS (1)
  1. CLARITHROMYCIN [Suspect]
     Dosage: UNKNOWN
     Route: 048

REACTIONS (4)
  - DEHYDRATION [None]
  - GRAND MAL CONVULSION [None]
  - HALLUCINATION [None]
  - RENAL FAILURE ACUTE [None]
